FAERS Safety Report 9129866 (Version 1)
Quarter: 2013Q1

REPORT INFORMATION
  Report Type: Spontaneous
  Country: US (occurrence: US)
  Receive Date: 20130228
  Receipt Date: 20130228
  Transmission Date: 20140127
  Serious: No
  Sender: FDA-Public Use
  Company Number: US-009507513-1302USA013492

PATIENT
  Sex: Male

DRUGS (2)
  1. TINACTIN [Suspect]
     Indication: RASH PRURITIC
     Dosage: UNK, UNKNOWN
     Route: 061
  2. TINACTIN [Suspect]
     Indication: CELLULITIS

REACTIONS (3)
  - Drug ineffective for unapproved indication [Unknown]
  - Expired drug administered [Unknown]
  - Off label use [Unknown]
